FAERS Safety Report 5018291-5 (Version None)
Quarter: 2006Q2

REPORT INFORMATION
  Report Type: 
  Country: None (occurrence: None)
  Receive Date: 20060530
  Receipt Date: 20060515
  Transmission Date: 20061013
  Serious: Yes (Life-Threatening, Hospitalization, Other)
  Sender: FDA-Public Use
  Company Number: 2006046426

PATIENT
  Age: 54 Year
  Sex: Female

DRUGS (4)
  1. LYRICA [Suspect]
     Indication: EPILEPSY
     Dosage: 300 MG (150 MG, 2 IN 1 D), ORAL
     Route: 048
     Dates: start: 20060215, end: 20060315
  2. GABAPENTIN [Suspect]
     Indication: ILL-DEFINED DISORDER
     Dosage: 900 MG (300 MG, 3 IN 1 D), ORAL
     Route: 048
     Dates: end: 20060215
  3. CARBAMAZEPINE [Suspect]
     Indication: EPILEPSY
     Dosage: (400 MG, 2 IN 1 D), ORAL
     Route: 048
     Dates: end: 20060215
  4. ANTIEPILEPTICS (ANTIEPILEPTICS) [Concomitant]

REACTIONS (7)
  - BEDRIDDEN [None]
  - COMPLEX PARTIAL SEIZURES [None]
  - EPILEPSY [None]
  - HEPATITIS TOXIC [None]
  - NEUTROPENIA [None]
  - PNEUMONIA [None]
  - SKIN REACTION [None]
